FAERS Safety Report 25938474 (Version 1)
Quarter: 2025Q4

REPORT INFORMATION
  Report Type: Spontaneous
  Country: CA (occurrence: CA)
  Receive Date: 20251019
  Receipt Date: 20251019
  Transmission Date: 20260117
  Serious: Yes (Death, Hospitalization, Other)
  Sender: DR REDDYS
  Company Number: None

PATIENT
  Age: 72 Year
  Sex: Male

DRUGS (11)
  1. AZACITIDINE [Suspect]
     Active Substance: AZACITIDINE
     Indication: Product used for unknown indication
  2. AZACITIDINE [Suspect]
     Active Substance: AZACITIDINE
  3. VENETOCLAX [Suspect]
     Active Substance: VENETOCLAX
     Indication: Acute myeloid leukaemia
     Route: 048
  4. VENETOCLAX [Suspect]
     Active Substance: VENETOCLAX
     Route: 048
  5. VENETOCLAX [Suspect]
     Active Substance: VENETOCLAX
     Route: 048
  6. VENETOCLAX [Suspect]
     Active Substance: VENETOCLAX
     Route: 048
  7. ALLOPURINOL SODIUM [Concomitant]
     Active Substance: ALLOPURINOL SODIUM
     Indication: Prophylaxis
  8. ALLOPURINOL SODIUM [Concomitant]
     Active Substance: ALLOPURINOL SODIUM
  9. COVID-19 VACCINE MRNA [Concomitant]
     Indication: COVID-19 immunisation
     Route: 065
  10. COVID-19 VACCINE MRNA [Concomitant]
     Route: 065
  11. COVID-19 VACCINE MRNA [Concomitant]
     Route: 065

REACTIONS (16)
  - Death [Fatal]
  - Anaemia [Fatal]
  - Febrile neutropenia [Fatal]
  - Febrile neutropenia [Fatal]
  - Febrile neutropenia [Fatal]
  - Gastrointestinal haemorrhage [Fatal]
  - Hypokalaemia [Fatal]
  - Hypotension [Fatal]
  - Hypoxia [Fatal]
  - Neutrophil count decreased [Fatal]
  - Neutrophil count decreased [Fatal]
  - Platelet count decreased [Fatal]
  - Pleural effusion [Fatal]
  - Pneumonia [Fatal]
  - Skin infection [Fatal]
  - White blood cell count decreased [Fatal]
